FAERS Safety Report 22211675 (Version 1)
Quarter: 2023Q2

REPORT INFORMATION
  Report Type: Spontaneous
  Country: US (occurrence: US)
  Receive Date: 20230414
  Receipt Date: 20230414
  Transmission Date: 20230722
  Serious: No
  Sender: FDA-Public Use
  Company Number: US-VER-202300027

PATIENT
  Age: 10 Year
  Sex: Female

DRUGS (2)
  1. TRELSTAR [Suspect]
     Active Substance: TRIPTORELIN PAMOATE
     Indication: Puberty
     Route: 065
  2. TRELSTAR [Suspect]
     Active Substance: TRIPTORELIN PAMOATE
     Indication: Off label use
     Route: 065

REACTIONS (2)
  - Off label use [Unknown]
  - Off label use [Unknown]
